FAERS Safety Report 9093082 (Version 2)
Quarter: 2013Q4

REPORT INFORMATION
  Report Type: Spontaneous
  Country: US (occurrence: US)
  Receive Date: 20130201
  Receipt Date: 20131009
  Transmission Date: 20140711
  Serious: Yes (Hospitalization, Other)
  Sender: FDA-Public Use
  Company Number: US-GILEAD-2012-0065285

PATIENT
  Age: 73 Year
  Sex: Female

DRUGS (1)
  1. LETAIRIS [Suspect]
     Indication: COR PULMONALE CHRONIC
     Dosage: 5 MG, QD
     Route: 048
     Dates: start: 20120906

REACTIONS (5)
  - Pleural adhesion [Unknown]
  - Fluid retention [Unknown]
  - Pleural effusion [Unknown]
  - Unevaluable event [Unknown]
  - Infection [Unknown]
